FAERS Safety Report 6783161-9 (Version None)
Quarter: 2010Q2

REPORT INFORMATION
  Report Type: 
  Country: None (occurrence: None)
  Receive Date: 20100622
  Receipt Date: 20100609
  Transmission Date: 20101027
  Serious: Yes (Other)
  Sender: FDA-Public Use
  Company Number: DE-PFIZER INC-2010073363

PATIENT
  Sex: Female

DRUGS (6)
  1. ATARAX [Suspect]
  2. CETIRIZINE [Concomitant]
  3. LORZAAR [Concomitant]
     Dosage: 50 MG, UNK
  4. TRIAMTERENE AND HYDROCHLOROTHIAZIDE [Concomitant]
  5. MARCUMAR [Concomitant]
  6. CONCOR COR [Concomitant]
     Dosage: 12.5 MG, UNK

REACTIONS (2)
  - HEPATITIS [None]
  - LIVER INJURY [None]
